FAERS Safety Report 23709742 (Version 11)
Quarter: 2025Q2

REPORT INFORMATION
  Report Type: Report from Study
  Country: US (occurrence: US)
  Receive Date: 20240404
  Receipt Date: 20250618
  Transmission Date: 20250717
  Serious: Yes (Hospitalization, Other)
  Sender: ABBVIE
  Company Number: US-ABBVIE-5702641

PATIENT
  Age: 34 Year
  Sex: Female
  Weight: 88 kg

DRUGS (4)
  1. ORILISSA [Suspect]
     Active Substance: ELAGOLIX SODIUM
     Indication: Endometriosis
     Route: 048
     Dates: start: 2020
  2. ORILISSA [Suspect]
     Active Substance: ELAGOLIX SODIUM
     Indication: Endometriosis
     Route: 048
     Dates: start: 2021, end: 20231101
  3. OMEPRAZOLE [Concomitant]
     Active Substance: OMEPRAZOLE
     Indication: Gastrooesophageal reflux disease
     Route: 048
     Dates: start: 20230601, end: 20231227
  4. FOLIC ACID [Concomitant]
     Active Substance: FOLIC ACID
     Indication: Product used for unknown indication

REACTIONS (12)
  - Postoperative adhesion [Unknown]
  - Maternal exposure during pregnancy [Unknown]
  - Gestational diabetes [Recovered/Resolved]
  - Spontaneous haemorrhage [Not Recovered/Not Resolved]
  - Live birth [Unknown]
  - Polyhydramnios [Unknown]
  - Von Willebrand^s disease [Unknown]
  - Haemorrhage in pregnancy [Unknown]
  - Hypertension [Unknown]
  - Placenta praevia [Recovered/Resolved with Sequelae]
  - Large for dates baby [Recovered/Resolved]
  - Weight gain poor [Recovered/Resolved]

NARRATIVE: CASE EVENT DATE: 20240124
